FAERS Safety Report 18808727 (Version 1)
Quarter: 2021Q1

REPORT INFORMATION
  Report Type: Spontaneous
  Country: US (occurrence: US)
  Receive Date: 20210129
  Receipt Date: 20210129
  Transmission Date: 20210419
  Serious: No
  Sender: FDA-Public Use
  Company Number: US-SOMERSET-2020-US-000483

PATIENT
  Age: 23 Year
  Sex: Male

DRUGS (2)
  1. HALOPERIDOL DECANOATE INJECTION [Suspect]
     Active Substance: HALOPERIDOL DECANOATE
     Route: 030
     Dates: start: 20201102, end: 20201102
  2. HALOPERIDOL DECANOATE INJECTION [Suspect]
     Active Substance: HALOPERIDOL DECANOATE
     Route: 030
     Dates: start: 20201102, end: 20201102

REACTIONS (1)
  - Injection site pain [Recovered/Resolved]

NARRATIVE: CASE EVENT DATE: 20201102
